FAERS Safety Report 13918919 (Version 3)
Quarter: 2017Q4

REPORT INFORMATION
  Report Type: Spontaneous
  Country: FR (occurrence: FR)
  Receive Date: 20170830
  Receipt Date: 20171103
  Transmission Date: 20180320
  Serious: Yes (Other)
  Sender: FDA-Public Use
  Company Number: FR-MERCK KGAA-2025288

PATIENT
  Age: 47 Year
  Sex: Female

DRUGS (3)
  1. NOVOTHYROX [Suspect]
     Active Substance: LEVOTHYROXINE SODIUM
     Indication: HYPOTHYROIDISM
     Route: 048
     Dates: start: 201705, end: 20170720
  2. LEVOTHYROX 100 NF [Suspect]
     Active Substance: LEVOTHYROXINE SODIUM
  3. LEVOTHYROX 100 NF [Suspect]
     Active Substance: LEVOTHYROXINE SODIUM
     Route: 048
     Dates: start: 20170720

REACTIONS (10)
  - Blood thyroid stimulating hormone decreased [Not Recovered/Not Resolved]
  - Diffuse alopecia [Recovering/Resolving]
  - Amnesia [Recovering/Resolving]
  - Asthenia [Recovering/Resolving]
  - Abdominal distension [Recovering/Resolving]
  - Hypothyroidism [Recovered/Resolved]
  - Depression [Recovering/Resolving]
  - Myalgia [Recovering/Resolving]
  - Product formulation issue [Recovering/Resolving]
  - Arthralgia [Recovering/Resolving]

NARRATIVE: CASE EVENT DATE: 20170718
